FAERS Safety Report 14607953 (Version 2)
Quarter: 2018Q1

REPORT INFORMATION
  Report Type: Spontaneous
  Country: JP (occurrence: JP)
  Receive Date: 20180307
  Receipt Date: 20180308
  Transmission Date: 20180509
  Serious: Yes (Other)
  Sender: FDA-Public Use
  Company Number: JP-ABBVIE-18K-087-2279174-00

PATIENT
  Sex: Female

DRUGS (2)
  1. BUCILLAMINE [Concomitant]
     Active Substance: BUCILLAMINE
     Indication: PRODUCT USED FOR UNKNOWN INDICATION
     Route: 048
  2. HUMIRA [Suspect]
     Active Substance: ADALIMUMAB
     Indication: PRODUCT USED FOR UNKNOWN INDICATION
     Route: 058
     Dates: start: 201711

REACTIONS (3)
  - Productive cough [Unknown]
  - Bronchial obstruction [Unknown]
  - Sneezing [Unknown]
